FAERS Safety Report 5673039-6 (Version None)
Quarter: 2008Q1

REPORT INFORMATION
  Report Type: 
  Country: None (occurrence: None)
  Receive Date: 20080319
  Receipt Date: 20080122
  Transmission Date: 20080703
  Serious: No
  Sender: FDA-Public Use
  Company Number: US-ASTRAZENECA-2008UW01583

PATIENT
  Age: 74 Year
  Sex: Female
  Weight: 67.6 kg

DRUGS (8)
  1. SYMBICORT [Suspect]
     Indication: ASTHMA
     Dosage: 160/4.5 UG 2 PUFFS BID
     Route: 055
     Dates: start: 20070701
  2. THYROID PILL [Concomitant]
     Route: 048
  3. PREVACID [Concomitant]
  4. CELEBREX [Concomitant]
  5. SINGULAIR [Concomitant]
  6. CALCIUM [Concomitant]
  7. VITAMIN D [Concomitant]
  8. ACTONEL [Concomitant]

REACTIONS (5)
  - BACK PAIN [None]
  - BONE DENSITY DECREASED [None]
  - COUGH [None]
  - OEDEMA PERIPHERAL [None]
  - PAIN IN EXTREMITY [None]
